FAERS Safety Report 8551616-2 (Version None)
Quarter: 2012Q3

REPORT INFORMATION
  Report Type: 
  Country: None (occurrence: None)
  Receive Date: 20120730
  Receipt Date: 20080519
  Transmission Date: 20120928
  Serious: Yes (Other)
  Sender: FDA-Public Use
  Company Number: CO-PFIZER INC-2012181433

PATIENT
  Age: 75 Year
  Sex: Female

DRUGS (6)
  1. METOPROLOL TARTRATE [Concomitant]
     Dosage: 50 MG, 2X/DAY
  2. LIPITOR [Suspect]
     Indication: DYSLIPIDAEMIA
     Dosage: 10 MG, 1X/DAY
  3. FOLIC ACID [Concomitant]
     Dosage: 30 MG, 1X/DAY
  4. NIFEDIPINE [Concomitant]
     Dosage: 30 MG, 2X/DAY
  5. ACETYLSALICYLIC ACID [Concomitant]
     Dosage: 100 MG, 1X/DAY
  6. CLONIDINE HYDROCHLORIDE [Concomitant]
     Indication: HYPERTENSION
     Dosage: 150 MG, 2X/DAY

REACTIONS (6)
  - ANGIOPATHY [None]
  - GLYCOSURIA [None]
  - HYPOACUSIS [None]
  - CARDIOVASCULAR DISORDER [None]
  - RENAL FAILURE CHRONIC [None]
  - TOBACCO USER [None]
